FAERS Safety Report 19366390 (Version 1)
Quarter: 2021Q2

REPORT INFORMATION
  Report Type: Report from Study
  Country: AU (occurrence: AU)
  Receive Date: 20210602
  Receipt Date: 20210602
  Transmission Date: 20210717
  Serious: Yes (Other)
  Sender: FDA-Public Use
  Company Number: AU-TAKEDA-2021TUS016021

PATIENT
  Sex: Female

DRUGS (3)
  1. AUGMENTIN DUO [Concomitant]
     Active Substance: AMOXICILLIN\CLAVULANATE POTASSIUM
     Dosage: UNK UNK, QD
  2. VEDOLIZUMAB [Suspect]
     Active Substance: VEDOLIZUMAB
     Indication: COLITIS ULCERATIVE
     Dosage: 300 MILLIGRAM, Q8WEEKS
     Route: 042
  3. CIPROFLOXACIN. [Concomitant]
     Active Substance: CIPROFLOXACIN
     Dosage: 250 MILLIGRAM, QD

REACTIONS (4)
  - Haematochezia [Unknown]
  - Decreased appetite [Not Recovered/Not Resolved]
  - Colitis [Not Recovered/Not Resolved]
  - Fatigue [Not Recovered/Not Resolved]
